FAERS Safety Report 8732933 (Version 84)
Quarter: 2022Q1

REPORT INFORMATION
  Report Type: Other
  Country: CA (occurrence: None)
  Receive Date: 20120820
  Receipt Date: 20220324
  Transmission Date: 20220423
  Serious: Yes (Hospitalization, Other)
  Sender: FDA-Public Use
  Company Number: CA-ROCHE-1101039

PATIENT
  Age: 66 Year
  Sex: Female
  Weight: 95 kg

DRUGS (24)
  1. ACTEMRA [Suspect]
     Active Substance: TOCILIZUMAB
     Indication: Rheumatoid arthritis
     Route: 042
     Dates: start: 20100621, end: 20110331
  2. ACTEMRA [Suspect]
     Active Substance: TOCILIZUMAB
     Route: 042
     Dates: start: 20110510, end: 20130731
  3. ACTEMRA [Suspect]
     Active Substance: TOCILIZUMAB
     Route: 042
     Dates: start: 20120802
  4. ACTEMRA [Suspect]
     Active Substance: TOCILIZUMAB
     Route: 042
     Dates: start: 20131108
  5. ACTEMRA [Suspect]
     Active Substance: TOCILIZUMAB
     Route: 042
     Dates: start: 20150420
  6. ACTEMRA [Suspect]
     Active Substance: TOCILIZUMAB
     Route: 042
     Dates: start: 20150813
  7. LIPITOR [Suspect]
     Active Substance: ATORVASTATIN CALCIUM
     Indication: Product used for unknown indication
     Route: 065
     Dates: start: 201306
  8. PERINDOPRIL [Suspect]
     Active Substance: PERINDOPRIL
     Indication: Product used for unknown indication
     Route: 065
     Dates: start: 2013
  9. NADOLOL [Suspect]
     Active Substance: NADOLOL
     Indication: Product used for unknown indication
     Route: 065
     Dates: start: 2013
  10. NADOLOL [Suspect]
     Active Substance: NADOLOL
     Route: 065
     Dates: end: 201309
  11. ELIQUIS [Suspect]
     Active Substance: APIXABAN
     Indication: Anticoagulant therapy
     Route: 048
     Dates: start: 201401
  12. FUROSEMIDE [Concomitant]
     Active Substance: FUROSEMIDE
     Dates: start: 201306
  13. SYNTHROID [Concomitant]
     Active Substance: LEVOTHYROXINE SODIUM
     Route: 065
  14. SYNTHROID [Concomitant]
     Active Substance: LEVOTHYROXINE SODIUM
     Dosage: DOSE INCREASED ABOUT 2 MONTHS AGO
  15. TYLENOL [Concomitant]
     Active Substance: ACETAMINOPHEN
  16. EFFEXOR [Concomitant]
     Active Substance: VENLAFAXINE HYDROCHLORIDE
  17. XANAX [Concomitant]
     Active Substance: ALPRAZOLAM
  18. DELATESTRYL [Concomitant]
     Active Substance: TESTOSTERONE ENANTHATE
  19. DELESTROGEN [Concomitant]
     Active Substance: ESTRADIOL VALERATE
  20. CALCIUM [Concomitant]
     Active Substance: CALCIUM
  21. CRESTOR [Concomitant]
     Active Substance: ROSUVASTATIN CALCIUM
     Indication: Blood cholesterol
  22. DIOVAN [Concomitant]
     Active Substance: VALSARTAN
  23. EZETIMIBE [Concomitant]
     Active Substance: EZETIMIBE
     Route: 065
  24. XANAX [Concomitant]
     Active Substance: ALPRAZOLAM

REACTIONS (79)
  - Rectal haemorrhage [Recovered/Resolved]
  - Faeces discoloured [Unknown]
  - Ulcer haemorrhage [Recovering/Resolving]
  - Cardiac failure congestive [Recovering/Resolving]
  - Atrial fibrillation [Recovering/Resolving]
  - Herpes zoster [Not Recovered/Not Resolved]
  - Bacterial infection [Unknown]
  - Gastric ulcer [Unknown]
  - Ear congestion [Unknown]
  - Bursitis [Not Recovered/Not Resolved]
  - Cough [Unknown]
  - Musculoskeletal chest pain [Unknown]
  - Rectal haemorrhage [Recovered/Resolved]
  - Heart rate decreased [Not Recovered/Not Resolved]
  - Chest pain [Recovering/Resolving]
  - Deep vein thrombosis [Unknown]
  - Arthralgia [Unknown]
  - Abdominal pain [Unknown]
  - Diarrhoea [Unknown]
  - Back pain [Unknown]
  - Rash [Unknown]
  - Arthralgia [Unknown]
  - Bronchitis [Unknown]
  - Oral herpes [Unknown]
  - Nasopharyngitis [Unknown]
  - Migraine [Unknown]
  - Headache [Unknown]
  - Blood pressure increased [Unknown]
  - Pain in extremity [Unknown]
  - Thyroid disorder [Unknown]
  - Weight increased [Unknown]
  - Dysphonia [Not Recovered/Not Resolved]
  - Fatigue [Unknown]
  - Asthenia [Not Recovered/Not Resolved]
  - Cough [Unknown]
  - Stress [Not Recovered/Not Resolved]
  - Sciatica [Recovering/Resolving]
  - Fungal infection [Unknown]
  - Fatigue [Not Recovered/Not Resolved]
  - Weight decreased [Not Recovered/Not Resolved]
  - Inflammation [Not Recovered/Not Resolved]
  - Bronchitis [Recovered/Resolved]
  - Contusion [Unknown]
  - Peripheral swelling [Unknown]
  - Infusion related reaction [Unknown]
  - Swelling [Not Recovered/Not Resolved]
  - Urinary tract infection [Not Recovered/Not Resolved]
  - Nasopharyngitis [Recovered/Resolved]
  - Pain [Unknown]
  - Sciatica [Not Recovered/Not Resolved]
  - Aphthous ulcer [Not Recovered/Not Resolved]
  - Fatigue [Unknown]
  - Ligament sprain [Unknown]
  - Gait inability [Not Recovered/Not Resolved]
  - Abdominal pain [Not Recovered/Not Resolved]
  - Nasal congestion [Not Recovered/Not Resolved]
  - Sinusitis [Recovered/Resolved]
  - Epistaxis [Unknown]
  - Dyspnoea [Not Recovered/Not Resolved]
  - Urticaria [Not Recovered/Not Resolved]
  - Blood pressure increased [Unknown]
  - Blood pressure fluctuation [Unknown]
  - Blood pressure systolic increased [Unknown]
  - Off label use [Unknown]
  - Oxygen saturation decreased [Unknown]
  - Haemoglobin decreased [Unknown]
  - Weight fluctuation [Unknown]
  - Body temperature decreased [Unknown]
  - Blood pressure diastolic abnormal [Unknown]
  - Blood pressure systolic abnormal [Unknown]
  - Diarrhoea [Unknown]
  - Pain in extremity [Unknown]
  - Cellulitis [Unknown]
  - Oral herpes [Unknown]
  - Urinary tract infection [Unknown]
  - Burning sensation [Recovered/Resolved]
  - Micturition urgency [Recovered/Resolved]
  - Oxygen saturation decreased [Unknown]
  - Nausea [Recovered/Resolved]

NARRATIVE: CASE EVENT DATE: 20100803
